FAERS Safety Report 7080744-6 (Version None)
Quarter: 2010Q4

REPORT INFORMATION
  Report Type: 
  Country: None (occurrence: None)
  Receive Date: 20101022
  Receipt Date: 20101012
  Transmission Date: 20110411
  Serious: Yes (Other)
  Sender: FDA-Public Use
  Company Number: 2010MA003634

PATIENT
  Age: 73 Year
  Sex: Female

DRUGS (1)
  1. NAPROXEN [Suspect]
     Dosage: 1000 MG; X1; PO
     Route: 048

REACTIONS (2)
  - HYPERHIDROSIS [None]
  - WRONG DRUG ADMINISTERED [None]
